FAERS Safety Report 4811146-8 (Version None)
Quarter: 2005Q4

REPORT INFORMATION
  Report Type: 
  Country: None (occurrence: None)
  Receive Date: 20051027
  Receipt Date: 20051020
  Transmission Date: 20060501
  Serious: Yes (Hospitalization)
  Sender: FDA-Public Use
  Company Number: DK-GLAXOSMITHKLINE-B0398323A

PATIENT
  Age: 73 Year
  Sex: Female

DRUGS (9)
  1. KIVEXA [Suspect]
     Indication: HIV INFECTION
     Route: 048
     Dates: start: 20051003, end: 20051004
  2. VIREAD [Concomitant]
     Indication: HIV INFECTION
     Dosage: 1TAB PER DAY
     Route: 048
     Dates: start: 20030709
  3. ISOPTIN [Concomitant]
     Indication: ATRIAL FLUTTER
     Dosage: 120MG TWICE PER DAY
     Dates: start: 20020101
  4. CENTYL KCL [Concomitant]
     Dosage: 1TAB PER DAY
     Dates: start: 20030101
  5. MAREVAN [Concomitant]
     Indication: ATRIAL FLUTTER
     Dates: start: 20020101
  6. GABAPENTIN [Concomitant]
     Indication: BACK PAIN
     Dosage: 1TAB THREE TIMES PER DAY
     Dates: start: 20040101
  7. METADON [Concomitant]
     Indication: BACK PAIN
     Dosage: 5MG THREE TIMES PER DAY
     Dates: start: 20040101
  8. UNKNOWN DRUG [Concomitant]
     Dosage: 25MG PER DAY
     Dates: start: 20040101
  9. IMOVANE [Concomitant]
     Dosage: 3.25MG PER DAY
     Dates: start: 20040101

REACTIONS (9)
  - ANXIETY [None]
  - CHILLS [None]
  - DISCOMFORT [None]
  - HYPERSENSITIVITY [None]
  - MUSCLE SPASMS [None]
  - NAUSEA [None]
  - OESOPHAGEAL STENOSIS [None]
  - TREMOR [None]
  - VOMITING [None]
